FAERS Safety Report 7130008-7 (Version None)
Quarter: 2010Q4

REPORT INFORMATION
  Report Type: 
  Country: None (occurrence: None)
  Receive Date: 20101201
  Receipt Date: 20101116
  Transmission Date: 20110411
  Serious: Yes (Hospitalization)
  Sender: FDA-Public Use
  Company Number: US-BIOGENIDEC-2010BI034591

PATIENT
  Age: 35 Year
  Sex: Female

DRUGS (6)
  1. TYSABRI [Suspect]
     Indication: CROHN'S DISEASE
     Route: 042
     Dates: start: 20090305
  2. ZOLOFT [Concomitant]
  3. PRILOSEC [Concomitant]
  4. NADOLOL [Concomitant]
  5. ALBUTEROL [Concomitant]
  6. FLOVENT [Concomitant]
     Indication: ASTHMA
     Dosage: DOSE UNIT:2

REACTIONS (6)
  - COLECTOMY [None]
  - GASTRIC VARICES [None]
  - HAEMORRHAGIC ANAEMIA [None]
  - PORTAL VEIN THROMBOSIS [None]
  - PROCEDURAL PAIN [None]
  - SPLENIC INFARCTION [None]
